FAERS Safety Report 6435323-8 (Version None)
Quarter: 2009Q4

REPORT INFORMATION
  Report Type: 
  Country: None (occurrence: None)
  Receive Date: 20091106
  Receipt Date: 20091021
  Transmission Date: 20100525
  Serious: Yes (Hospitalization)
  Sender: FDA-Public Use
  Company Number: 6055376

PATIENT
  Age: 87 Year
  Sex: Female

DRUGS (4)
  1. LEVOTHYROX 50  (LEVOTHYROXINE SODIUM) [Suspect]
     Indication: HYPOTHYROIDISM
     Dosage: 1 DOSAGE FORMS (1 DOSAGE FORMS, 1 IN 1 D) ORAL
     Route: 048
  2. PREVISCAN (20 MG, TABLET) (FLUINDIONE) [Suspect]
     Indication: THROMBOSIS PROPHYLAXIS
     Dosage: ACCORDING TO INR ORAL
     Route: 048
     Dates: start: 20090812, end: 20090818
  3. CORDARONE [Suspect]
     Indication: ARRHYTHMIA
     Dosage: 1 DOSAGE FORMS (1 DOSAGE FORMS, 1 IN 1 D) ORAL
     Route: 048
     Dates: start: 20090812
  4. AUGMENTIN [Suspect]
     Indication: LUNG DISORDER
     Dosage: 6 DOSAGE FORMS (2 DOSAGE FORMS, 3 IN 1 D) ORAL
     Route: 048
     Dates: start: 20090812, end: 20090822

REACTIONS (11)
  - ARRHYTHMIA [None]
  - ATRIAL FIBRILLATION [None]
  - DEPRESSED LEVEL OF CONSCIOUSNESS [None]
  - DRUG INTERACTION [None]
  - HELICOBACTER INFECTION [None]
  - INTERNATIONAL NORMALISED RATIO INCREASED [None]
  - MALAISE [None]
  - MENINGIOMA [None]
  - MOTOR DYSFUNCTION [None]
  - OVERDOSE [None]
  - ULCER HAEMORRHAGE [None]
